FAERS Safety Report 24253930 (Version 8)
Quarter: 2025Q3

REPORT INFORMATION
  Report Type: Spontaneous
  Country: JP (occurrence: JP)
  Receive Date: 20240827
  Receipt Date: 20250916
  Transmission Date: 20251020
  Serious: Yes (Life-Threatening, Hospitalization)
  Sender: ALEXION PHARMACEUTICALS
  Company Number: 2024A191439

PATIENT
  Age: 62 Year
  Sex: Female
  Weight: 43 kg

DRUGS (35)
  1. TRUQAP [Suspect]
     Active Substance: CAPIVASERTIB
     Indication: Breast cancer
     Dosage: 4 DAYS IN A ROW, FOLLOWED BY 3 DAYS OFF
     Dates: start: 20240726, end: 20240808
  2. TRUQAP [Suspect]
     Active Substance: CAPIVASERTIB
     Dates: start: 20240821, end: 20240822
  3. TRUQAP [Suspect]
     Active Substance: CAPIVASERTIB
     Dates: start: 20240823, end: 20240825
  4. TRUQAP [Suspect]
     Active Substance: CAPIVASERTIB
  5. FASLODEX [Suspect]
     Active Substance: FULVESTRANT
     Indication: Breast cancer
     Dates: start: 20230125, end: 20240526
  6. FASLODEX [Suspect]
     Active Substance: FULVESTRANT
  7. PREGABALIN [Concomitant]
     Active Substance: PREGABALIN
     Indication: Hypoaesthesia
     Dates: start: 20221114
  8. PREGABALIN [Concomitant]
     Active Substance: PREGABALIN
     Indication: Pain
  9. TRAMADOL [Concomitant]
     Active Substance: TRAMADOL
     Indication: Hypoaesthesia
     Dates: start: 20230125
  10. TRAMADOL [Concomitant]
     Active Substance: TRAMADOL
     Indication: Pain
  11. REBAMIPIDE [Concomitant]
     Active Substance: REBAMIPIDE
  12. METHYLCOBALAMIN [Concomitant]
     Active Substance: METHYLCOBALAMIN
     Indication: Hypoaesthesia
     Dosage: 500 MICROGRAM, TID
     Dates: start: 20230125
  13. METHYLCOBALAMIN [Concomitant]
     Active Substance: METHYLCOBALAMIN
     Indication: Pain
  14. MIYA-BM [Concomitant]
     Active Substance: CLOSTRIDIUM BUTYRICUM SPORES STRAIN M-55
     Dates: start: 20230125
  15. VONOPRAZAN FUMARATE [Concomitant]
     Active Substance: VONOPRAZAN FUMARATE
     Indication: Gastric ulcer haemorrhage
     Dates: start: 20240628
  16. MAGNESIUM OXIDE [Concomitant]
     Active Substance: MAGNESIUM OXIDE
     Indication: Constipation
     Dosage: AS REQUIRED
     Dates: start: 20240725
  17. DENOSUMAB [Concomitant]
     Active Substance: DENOSUMAB
     Indication: Breast cancer
     Route: 065
  18. ABEMACICLIB [Concomitant]
     Active Substance: ABEMACICLIB
     Route: 065
  19. EPIRUBICIN HYDROCHLORIDE [Concomitant]
     Active Substance: EPIRUBICIN HYDROCHLORIDE
     Route: 065
  20. EPIRUBICIN HYDROCHLORIDE [Concomitant]
     Active Substance: EPIRUBICIN HYDROCHLORIDE
     Route: 065
  21. EPIRUBICIN HYDROCHLORIDE [Concomitant]
     Active Substance: EPIRUBICIN HYDROCHLORIDE
     Route: 065
  22. CYCLOPHOSPHAMIDE [Concomitant]
     Active Substance: CYCLOPHOSPHAMIDE
     Route: 065
  23. CYCLOPHOSPHAMIDE [Concomitant]
     Active Substance: CYCLOPHOSPHAMIDE
     Route: 065
  24. CYCLOPHOSPHAMIDE [Concomitant]
     Active Substance: CYCLOPHOSPHAMIDE
     Route: 065
  25. PEGFILGRASTIM [Concomitant]
     Active Substance: PEGFILGRASTIM
     Route: 065
  26. PEGFILGRASTIM [Concomitant]
     Active Substance: PEGFILGRASTIM
     Route: 065
  27. DENOSUMAB [Concomitant]
     Active Substance: DENOSUMAB
     Route: 065
  28. DENOSUMAB [Concomitant]
     Active Substance: DENOSUMAB
     Route: 065
  29. ENHERTU [Concomitant]
     Active Substance: FAM-TRASTUZUMAB DERUXTECAN-NXKI
     Route: 065
  30. VERZENIO [Concomitant]
     Active Substance: ABEMACICLIB
     Indication: Breast cancer
     Route: 065
  31. EXEMESTANE [Concomitant]
     Active Substance: EXEMESTANE
     Indication: Breast cancer
     Route: 065
  32. AFINITOR [Concomitant]
     Active Substance: EVEROLIMUS
     Indication: Breast cancer
     Route: 065
  33. CYCLOPHOSPHAMIDE [Concomitant]
     Active Substance: CYCLOPHOSPHAMIDE
     Route: 065
  34. CYCLOPHOSPHAMIDE [Concomitant]
     Active Substance: CYCLOPHOSPHAMIDE
     Route: 065
  35. CYCLOPHOSPHAMIDE [Concomitant]
     Active Substance: CYCLOPHOSPHAMIDE
     Route: 065

REACTIONS (6)
  - Hyperglycaemic hyperosmolar nonketotic syndrome [Recovering/Resolving]
  - Diabetic ketoacidosis [Recovering/Resolving]
  - Hyperglycaemia [Recovering/Resolving]
  - Altered state of consciousness [Unknown]
  - Rash [Recovered/Resolved]
  - Pyrexia [Unknown]

NARRATIVE: CASE EVENT DATE: 20240805
